FAERS Safety Report 8000582-7 (Version None)
Quarter: 2011Q4

REPORT INFORMATION
  Report Type: 
  Country: None (occurrence: None)
  Receive Date: 20111216
  Receipt Date: 20111205
  Transmission Date: 20120403
  Serious: Yes (Life-Threatening)
  Sender: FDA-Public Use
  Company Number: 2011MA017458

PATIENT

DRUGS (2)
  1. PAREGORIC LIQUID USP (ALPHARMA) (PAREGORIC) [Suspect]
     Indication: NEOPLASM
     Dosage: 0.6 MG;EPIDURAL
     Route: 008
  2. PAREGORIC LIQUID USP (ALPHARMA) (PAREGORIC) [Suspect]
     Indication: SURGERY
     Dosage: 0.6 MG;EPIDURAL
     Route: 008

REACTIONS (1)
  - RESPIRATORY DEPRESSION [None]
